FAERS Safety Report 5944978-3 (Version None)
Quarter: 2008Q4

REPORT INFORMATION
  Report Type: 
  Country: None (occurrence: None)
  Receive Date: 20081107
  Receipt Date: 20081027
  Transmission Date: 20090506
  Serious: Yes (Hospitalization)
  Sender: FDA-Public Use
  Company Number: AU-MERCK-0808AUS00162

PATIENT
  Age: 80 Year
  Sex: Male
  Weight: 90 kg

DRUGS (11)
  1. ZETIA [Suspect]
     Indication: HYPERCHOLESTEROLAEMIA
     Route: 048
     Dates: start: 20050124, end: 20070101
  2. ZETIA [Suspect]
     Route: 065
     Dates: start: 20070101, end: 20070101
  3. ZETIA [Suspect]
     Indication: CEREBROVASCULAR ACCIDENT PROPHYLAXIS
     Route: 048
     Dates: start: 20050124, end: 20070101
  4. ZETIA [Suspect]
     Route: 065
     Dates: start: 20070101, end: 20070101
  5. ZOCOR [Suspect]
     Indication: CEREBROVASCULAR ACCIDENT PROPHYLAXIS
     Route: 048
     Dates: start: 20060808, end: 20070101
  6. CLOPIDOGREL BISULFATE [Concomitant]
     Indication: CEREBROVASCULAR ACCIDENT PROPHYLAXIS
     Route: 065
     Dates: start: 20050101
  7. ESOMEPRAZOLE MAGNESIUM [Concomitant]
     Indication: GASTROOESOPHAGEAL REFLUX DISEASE
     Route: 065
  8. FLUTICASONE PROPIONATE [Concomitant]
     Indication: ASTHMA
     Route: 065
  9. FLUTICASONE PROPIONATE [Concomitant]
     Indication: SEASONAL ALLERGY
     Route: 065
  10. TRANDOLAPRIL [Concomitant]
     Indication: HORMONE REPLACEMENT THERAPY
     Route: 065
  11. FELODIPINE [Concomitant]
     Indication: HORMONE REPLACEMENT THERAPY
     Route: 065

REACTIONS (4)
  - INTERNAL FIXATION OF FRACTURE [None]
  - NEUROPATHY PERIPHERAL [None]
  - PERONEAL NERVE PALSY [None]
  - URINARY RETENTION [None]
